FAERS Safety Report 9624997 (Version 2)
Quarter: 2013Q4

REPORT INFORMATION
  Report Type: Spontaneous
  Country: SG (occurrence: SG)
  Receive Date: 20131016
  Receipt Date: 20131125
  Transmission Date: 20140711
  Serious: Yes (Other)
  Sender: FDA-Public Use
  Company Number: PHHY2013SG112929

PATIENT
  Age: 38 Year
  Sex: Female

DRUGS (9)
  1. HALOPERIDOL [Suspect]
     Indication: AGITATION
     Dosage: 1.5-3 MG/DAY
  2. LORAZEPAM [Suspect]
     Indication: AGITATION
     Dosage: 1.5 MG PER DAY
  3. OLANZAPINE [Suspect]
     Indication: AGITATION
     Dosage: 5 MG PER DAY
  4. OLANZAPINE [Suspect]
     Dosage: 10 MG PER DAY ON DAY 8
  5. HYDROCORTISONE [Concomitant]
     Indication: SYSTEMIC LUPUS ERYTHEMATOSUS
     Route: 042
  6. METHYLPREDNISOLONE [Concomitant]
     Indication: SYSTEMIC LUPUS ERYTHEMATOSUS
     Dosage: 1.5 G, TOTAL
     Route: 042
  7. PREDNISOLONE [Concomitant]
     Dosage: 55 MG/DAY
     Route: 048
  8. CYCLOPHOSPHAMIDE [Concomitant]
     Dosage: 1 G, ON DAY 7
     Route: 042
  9. RISPERIDONE [Concomitant]
     Dosage: 1 MG PER DAY

REACTIONS (3)
  - Musculoskeletal stiffness [Unknown]
  - Cogwheel rigidity [Unknown]
  - Drug ineffective [Unknown]
